FAERS Safety Report 4978330-4 (Version None)
Quarter: 2006Q2

REPORT INFORMATION
  Report Type: 
  Country: None (occurrence: None)
  Receive Date: 20060414
  Receipt Date: 20060403
  Transmission Date: 20061013
  Serious: Yes (Other)
  Sender: FDA-Public Use
  Company Number: JP-2006-007381

PATIENT
  Age: 59 Year
  Sex: Male

DRUGS (2)
  1. PROSCOPE 300 (IOPROMIDE) INFUSION [Suspect]
     Indication: COMPUTERISED TOMOGRAM
     Dosage: 100 ML, 1DOSE, INTRAVENOUS
     Route: 042
     Dates: start: 20060327, end: 20060327
  2. EPINEPHRINE (EPINEPHRINE) INFUSION [Suspect]
     Indication: HYPERSENSITIVITY
     Dosage: 1 MG, INTRAVENOUS
     Route: 042
     Dates: start: 20060327

REACTIONS (2)
  - ATRIAL FIBRILLATION [None]
  - HYPERSENSITIVITY [None]
